FAERS Safety Report 17070356 (Version 2)
Quarter: 2020Q1

REPORT INFORMATION
  Report Type: Spontaneous
  Country: US (occurrence: US)
  Receive Date: 20191125
  Receipt Date: 20200324
  Transmission Date: 20200409
  Serious: Yes (Other)
  Sender: FDA-Public Use
  Company Number: US-ASTRAZENECA-2019SF66503

PATIENT
  Age: 31655 Day
  Sex: Female

DRUGS (28)
  1. AMLODIPINE [Concomitant]
     Active Substance: AMLODIPINE BESYLATE
  2. DOXYCYCL [Concomitant]
  3. ESCIT ALOPRAM [Concomitant]
  4. ELIQUIS [Concomitant]
     Active Substance: APIXABAN
  5. ASPIRIN. [Concomitant]
     Active Substance: ASPIRIN
  6. NEXIUM [Suspect]
     Active Substance: ESOMEPRAZOLE MAGNESIUM
     Indication: GASTROOESOPHAGEAL REFLUX DISEASE
     Route: 048
     Dates: start: 2005, end: 2018
  7. PANTOPRAZOLE [Suspect]
     Active Substance: PANTOPRAZOLE
     Indication: GASTROOESOPHAGEAL REFLUX DISEASE
     Dosage: GENERIC
     Route: 065
     Dates: start: 2019
  8. BENAZEPRIL [Concomitant]
     Active Substance: BENAZEPRIL HYDROCHLORIDE
  9. NITROFUR MAC [Concomitant]
     Active Substance: NITROFURANTOIN
  10. XALATAN [Concomitant]
     Active Substance: LATANOPROST
  11. TRIAM/HCTZ [Concomitant]
     Active Substance: HYDROCHLOROTHIAZIDE\TRIAMTERENE
  12. ATORVASTATIN [Concomitant]
     Active Substance: ATORVASTATIN
  13. TOPROL XL [Concomitant]
     Active Substance: METOPROLOL SUCCINATE
  14. FEXOFENADINE [Concomitant]
     Active Substance: FEXOFENADINE HYDROCHLORIDE
  15. SIMVASTATIN. [Concomitant]
     Active Substance: SIMVASTATIN
  16. HYDROCHLOROTHIAZIDE. [Concomitant]
     Active Substance: HYDROCHLOROTHIAZIDE
  17. LOSARTAN. [Concomitant]
     Active Substance: LOSARTAN
  18. CIPROFLOXACN [Concomitant]
     Active Substance: CIPROFLOXACIN
  19. VESICARE [Concomitant]
     Active Substance: SOLIFENACIN SUCCINATE
  20. METFORMIN [Concomitant]
     Active Substance: METFORMIN HYDROCHLORIDE
  21. FUROSEMIDE. [Concomitant]
     Active Substance: FUROSEMIDE
  22. ASCORBIC ACID. [Concomitant]
     Active Substance: ASCORBIC ACID
  23. BYSTOLIC [Concomitant]
     Active Substance: NEBIVOLOL HYDROCHLORIDE
  24. DONEPEZIL. [Concomitant]
     Active Substance: DONEPEZIL
  25. SP!RONOLACTONE [Concomitant]
  26. NEXIUM [Suspect]
     Active Substance: ESOMEPRAZOLE MAGNESIUM
     Indication: GASTROOESOPHAGEAL REFLUX DISEASE
     Route: 065
     Dates: start: 20050915
  27. NITROFURANTOIN MONO [Concomitant]
     Active Substance: NITROFURANTOIN
  28. MEMANTINE. [Concomitant]
     Active Substance: MEMANTINE

REACTIONS (3)
  - Chronic kidney disease [Not Recovered/Not Resolved]
  - Renal failure [Unknown]
  - Acute kidney injury [Recovered/Resolved]

NARRATIVE: CASE EVENT DATE: 20160706
